FAERS Safety Report 6099020-3 (Version None)
Quarter: 2009Q1

REPORT INFORMATION
  Report Type: 
  Country: None (occurrence: None)
  Receive Date: 20090302
  Receipt Date: 20090220
  Transmission Date: 20090719
  Serious: Yes (Hospitalization)
  Sender: FDA-Public Use
  Company Number: DE-PFIZER INC-2009172479

PATIENT

DRUGS (10)
  1. IRINOTECAN HCL [Suspect]
     Indication: COLORECTAL CANCER METASTATIC
     Dosage: 180 MG/M2, BI-WEEKLY
     Route: 042
     Dates: start: 20080131
  2. BEVACIZUMAB [Suspect]
     Indication: COLORECTAL CANCER METASTATIC
     Dosage: 5 MG/KG, BI-WEEKLY
     Route: 042
     Dates: start: 20080131
  3. FLUOROURACIL [Suspect]
     Indication: COLORECTAL CANCER METASTATIC
     Dosage: 2800 MG/M2, BI-WEEKLY
     Route: 042
     Dates: start: 20080131
  4. FOLINIC ACID [Suspect]
     Indication: COLORECTAL CANCER METASTATIC
     Dosage: 400 MG/M2, BI-WEEKLY
     Dates: start: 20080131
  5. NAVOBAN [Concomitant]
     Dosage: UNK
     Route: 048
     Dates: start: 20080131
  6. FORTECORTIN [Concomitant]
     Dosage: UNK
     Route: 048
     Dates: start: 20080131
  7. NEURONTIN [Concomitant]
     Dosage: UNK
     Route: 048
  8. ALLOPURINOL [Concomitant]
     Dosage: UNK
     Route: 048
  9. ESIDRIX [Concomitant]
     Dosage: UNK
     Route: 048
  10. DOXAZOSIN [Concomitant]
     Dosage: UNK
     Route: 048

REACTIONS (1)
  - C-REACTIVE PROTEIN INCREASED [None]
